FAERS Safety Report 9775443 (Version 2)
Quarter: 2013Q4

REPORT INFORMATION
  Report Type: Spontaneous
  Country: US (occurrence: US)
  Receive Date: 20131220
  Receipt Date: 20131220
  Transmission Date: 20140711
  Serious: No
  Sender: FDA-Public Use
  Company Number: US-GALDERMA-US13003433

PATIENT
  Age: 60 Year
  Sex: Female

DRUGS (6)
  1. MIRVASO (BRIMONIDINE) TOPICAL GEL, 0.33% [Suspect]
     Indication: ROSACEA
     Dosage: 0.33%
     Route: 061
     Dates: start: 20131010, end: 20131024
  2. PLAQUENIL [Concomitant]
  3. REMERON [Concomitant]
  4. FOSAMAX [Concomitant]
  5. MEDROXYPROGESTERONE [Concomitant]
  6. ESTRATEST [Concomitant]

REACTIONS (4)
  - Rebound effect [Not Recovered/Not Resolved]
  - Condition aggravated [Not Recovered/Not Resolved]
  - Hyperaemia [Not Recovered/Not Resolved]
  - Erythema [Not Recovered/Not Resolved]
